FAERS Safety Report 5908144-X (Version None)
Quarter: 2008Q4

REPORT INFORMATION
  Report Type: 
  Country: None (occurrence: None)
  Receive Date: 20081003
  Receipt Date: 20080922
  Transmission Date: 20090506
  Serious: Yes (Other)
  Sender: FDA-Public Use
  Company Number: US-PFIZER INC-2008081656

PATIENT
  Sex: Female
  Weight: 70.3 kg

DRUGS (4)
  1. CHANTIX [Suspect]
     Indication: SMOKING CESSATION THERAPY
     Dates: start: 20080917, end: 20080920
  2. STELAZINE [Concomitant]
     Indication: DEPRESSION
  3. XANAX [Concomitant]
     Indication: DEPRESSION
  4. PROZAC [Concomitant]
     Indication: DEPRESSION

REACTIONS (3)
  - DEPRESSED MOOD [None]
  - MANIA [None]
  - MOOD SWINGS [None]
